FAERS Safety Report 22128534 (Version 1)
Quarter: 2023Q1

REPORT INFORMATION
  Report Type: Report from Study
  Country: US (occurrence: US)
  Receive Date: 20230323
  Receipt Date: 20230323
  Transmission Date: 20230417
  Serious: Yes (Other)
  Sender: FDA-Public Use
  Company Number: US-JNJFOC-20230335067

PATIENT
  Age: 52 Year
  Sex: Male

DRUGS (1)
  1. SIMPONI [Suspect]
     Active Substance: GOLIMUMAB
     Indication: Product used for unknown indication
     Route: 058

REACTIONS (5)
  - Cellulitis [Unknown]
  - Feeling cold [Unknown]
  - Peripheral swelling [Unknown]
  - Skin infection [Unknown]
  - Blister [Unknown]

NARRATIVE: CASE EVENT DATE: 20230101
